FAERS Safety Report 5208004-6 (Version None)
Quarter: 2007Q1

REPORT INFORMATION
  Report Type: 
  Country: None (occurrence: None)
  Receive Date: 20070110
  Receipt Date: 20061227
  Transmission Date: 20070707
  Serious: Yes (Hospitalization)
  Sender: FDA-Public Use
  Company Number: GXKR2006JP08520

PATIENT
  Age: 45 Year
  Sex: Male

DRUGS (4)
  1. MEXILETINE HYDROCHLORIDE [Suspect]
     Indication: CARDIAC FAILURE
     Dates: start: 19970605
  2. DIGOXIN [Concomitant]
  3. ASPIRIN [Concomitant]
  4. WARFARIN POTASSIUM [Concomitant]

REACTIONS (14)
  - ALANINE AMINOTRANSFERASE INCREASED [None]
  - ASPARTATE AMINOTRANSFERASE INCREASED [None]
  - BLOOD LACTATE DEHYDROGENASE INCREASED [None]
  - DRUG HYPERSENSITIVITY [None]
  - HEPATIC FUNCTION ABNORMAL [None]
  - LEUKOCYTOSIS [None]
  - NECROSIS [None]
  - OEDEMA PERIPHERAL [None]
  - PHARYNGEAL INFLAMMATION [None]
  - PHARYNGITIS [None]
  - PYREXIA [None]
  - RASH [None]
  - RASH PUSTULAR [None]
  - SWELLING FACE [None]
